FAERS Safety Report 7657673-X (Version None)
Quarter: 2011Q3

REPORT INFORMATION
  Report Type: 
  Country: None (occurrence: None)
  Receive Date: 20110804
  Receipt Date: 20110729
  Transmission Date: 20111222
  Serious: Yes (Death)
  Sender: FDA-Public Use
  Company Number: US-MERCK-1107USA04085

PATIENT
  Age: 13 Year
  Sex: Male

DRUGS (2)
  1. SINGULAIR [Suspect]
     Indication: ASTHMA
     Route: 048
     Dates: start: 20010101
  2. ADVAIR DISKUS 100/50 [Concomitant]
     Route: 065

REACTIONS (1)
  - COMPLETED SUICIDE [None]
